FAERS Safety Report 13910642 (Version 1)
Quarter: 2017Q3

REPORT INFORMATION
  Report Type: Spontaneous
  Country: US (occurrence: US)
  Receive Date: 20170826
  Receipt Date: 20170826
  Transmission Date: 20171127
  Serious: Yes (Disabling)
  Sender: FDA-Public Use
  Company Number: None

PATIENT
  Sex: Male
  Weight: 69.75 kg

DRUGS (28)
  1. LEVAQUIN [Suspect]
     Active Substance: LEVOFLOXACIN
     Indication: STAPHYLOCOCCAL INFECTION
     Route: 048
     Dates: start: 20160513, end: 20160523
  2. ACETYL-L-CARNITINE [Concomitant]
  3. COQ10 [Concomitant]
     Active Substance: UBIDECARENONE
  4. SELENIUM [Concomitant]
     Active Substance: SELENIUM
  5. LIPITOR [Concomitant]
     Active Substance: ATORVASTATIN CALCIUM
  6. FOLIC ACID. [Concomitant]
     Active Substance: FOLIC ACID
  7. GLUCOSAMINE SULFATE [Concomitant]
     Active Substance: GLUCOSAMINE SULFATE
  8. PABA [Concomitant]
     Active Substance: AMINOBENZOIC ACID
  9. CHROMIUM [Concomitant]
     Active Substance: CHROMIC CHLORIDE\CHROMIUM
  10. FISH OIL [Concomitant]
     Active Substance: FISH OIL
  11. IRON [Concomitant]
     Active Substance: IRON
  12. GINGKO BILOBA [Concomitant]
     Active Substance: GINKGO
  13. MSM [Concomitant]
     Active Substance: DIMETHYL SULFONE
  14. LUTEIN [Concomitant]
     Active Substance: LUTEIN
  15. MULTIPLE VITAMIN [Concomitant]
     Active Substance: VITAMINS
  16. SAW PALMETTO [Concomitant]
     Active Substance: HERBALS\SAW PALMETTO
  17. GRAPESEED EXTRACT [Concomitant]
  18. BIOTIN [Concomitant]
     Active Substance: BIOTIN
  19. VITAMIN B COMPLEX [Concomitant]
     Active Substance: CYANOCOBALAMIN\DEXPANTHENOL\NIACINAMIDE\PYRIDOXINE HYDROCHLORIDE\RIBOFLAVIN 5^-PHOSPHATE SODIUM\THIAMINE HYDROCHLORIDE\VITAMIN B COMPLEX
  20. ASPIRIN-83MG [Concomitant]
  21. CALCIUM CITRATE [Concomitant]
     Active Substance: CALCIUM CITRATE
  22. VITAMIN D3 [Concomitant]
     Active Substance: CHOLECALCIFEROL
  23. MAGNESIUM [Concomitant]
     Active Substance: MAGNESIUM
  24. E [Concomitant]
  25. C [Concomitant]
  26. DHEA [Concomitant]
     Active Substance: PRASTERONE
  27. R-ALPHA LIPOIC [Concomitant]
  28. ZINC. [Concomitant]
     Active Substance: ZINC

REACTIONS (1)
  - Insomnia [None]

NARRATIVE: CASE EVENT DATE: 20160514
